FAERS Safety Report 14629815 (Version 1)
Quarter: 2018Q1

REPORT INFORMATION
  Report Type: Spontaneous
  Country: GB (occurrence: GB)
  Receive Date: 20180313
  Receipt Date: 20180313
  Transmission Date: 20180509
  Serious: Yes (Hospitalization)
  Sender: FDA-Public Use
  Company Number: GB-TEVA-2018-GB-868007

PATIENT
  Age: 62 Year

DRUGS (15)
  1. GABAPENTIN. [Suspect]
     Active Substance: GABAPENTIN
     Indication: PAIN
     Route: 048
  2. METOLAZONE. [Concomitant]
     Active Substance: METOLAZONE
  3. ELOCON [Concomitant]
     Active Substance: MOMETASONE FUROATE
  4. HUMALOG MIX50/50 [Concomitant]
     Active Substance: INSULIN LISPRO
  5. IXEKIZUMAB [Concomitant]
     Active Substance: IXEKIZUMAB
  6. BUMETANIDE. [Concomitant]
     Active Substance: BUMETANIDE
  7. COCODAMOL [Concomitant]
     Active Substance: ACETAMINOPHEN\CODEINE PHOSPHATE
  8. ISOSORBIDE MONONITRATE. [Concomitant]
     Active Substance: ISOSORBIDE MONONITRATE
  9. RAMIPRIL. [Concomitant]
     Active Substance: RAMIPRIL
  10. FOSTAIR [Concomitant]
     Active Substance: BECLOMETHASONE\FORMOTEROL
     Route: 055
  11. TRAMADOL. [Suspect]
     Active Substance: TRAMADOL
     Indication: PAIN
     Dosage: 50-100MG FOUR TIMES DAILY
  12. CETIRIZINE [Concomitant]
     Active Substance: CETIRIZINE HYDROCHLORIDE
  13. METFORMIN [Concomitant]
     Active Substance: METFORMIN HYDROCHLORIDE
  14. DOXAZOSIN [Concomitant]
     Active Substance: DOXAZOSIN\DOXAZOSIN MESYLATE
  15. ATORVASTATIN [Concomitant]
     Active Substance: ATORVASTATIN

REACTIONS (1)
  - Rash morbilliform [Recovering/Resolving]
